FAERS Safety Report 15862948 (Version 1)
Quarter: 2019Q1

REPORT INFORMATION
  Report Type: Spontaneous
  Country: US (occurrence: US)
  Receive Date: 20190124
  Receipt Date: 20190124
  Transmission Date: 20190417
  Serious: Yes (Life-Threatening, Hospitalization)
  Sender: FDA-Public Use
  Company Number: US-ADAAP-201900004

PATIENT
  Age: 9 Decade
  Sex: Female
  Weight: 46 kg

DRUGS (2)
  1. LUTATHERA [Suspect]
     Active Substance: LUTETIUM OXODOTREOTIDE LU-177
     Indication: PRODUCT USED FOR UNKNOWN INDICATION
     Route: 065
     Dates: start: 20181107, end: 20181107
  2. 25 G L-LYSINE, 25 L-ARGININE [Concomitant]
     Indication: PRODUCT USED FOR UNKNOWN INDICATION
     Route: 042
     Dates: start: 20181107, end: 20181107

REACTIONS (4)
  - Ascites [Not Recovered/Not Resolved]
  - Hyperlactacidaemia [Not Recovered/Not Resolved]
  - Hyperammonaemia [Not Recovered/Not Resolved]
  - Abdominal pain [Not Recovered/Not Resolved]

NARRATIVE: CASE EVENT DATE: 20181204
